FAERS Safety Report 8791418 (Version 1)
Quarter: 2012Q4

REPORT INFORMATION
  Report Type: Spontaneous
  Country: DK (occurrence: None)
  Receive Date: 20120912
  Receipt Date: 20120912
  Transmission Date: 20130627
  Serious: Yes (Hospitalization)
  Sender: FDA-Public Use
  Company Number: 2012MA011036

PATIENT
  Age: 60 Year
  Sex: Male

DRUGS (3)
  1. EPIRUBICIN HYDROCHLORIDE [Suspect]
     Indication: ADENOCARCINOMA GASTRIC
     Route: 042
     Dates: start: 20120515
  2. CISPLATIN [Suspect]
     Route: 042
     Dates: start: 20120515
  3. CAPECITABINE [Suspect]
     Route: 048
     Dates: start: 20120515

REACTIONS (2)
  - Deep vein thrombosis [None]
  - Oedema peripheral [None]
